FAERS Safety Report 4837141-0 (Version None)
Quarter: 2005Q4

REPORT INFORMATION
  Report Type: 
  Country: None (occurrence: None)
  Receive Date: 20051122
  Receipt Date: 20051107
  Transmission Date: 20060501
  Serious: Yes (Other)
  Sender: FDA-Public Use
  Company Number: GBWYE123308NOV05

PATIENT

DRUGS (3)
  1. MINOCIN [Suspect]
     Indication: PHARYNGOLARYNGEAL PAIN
     Dosage: 100 MG 2X PER 1 DAY
     Route: 048
     Dates: start: 20041123, end: 20041130
  2. PROMETHAZINE [Concomitant]
  3. RIZATRIPTAN (RIZATRIPTAN) [Concomitant]

REACTIONS (6)
  - ABORTION INDUCED [None]
  - CHROMOSOME ABNORMALITY [None]
  - CONGENITAL ANOMALY [None]
  - DRUG EXPOSURE DURING PREGNANCY [None]
  - FOETAL GROWTH RETARDATION [None]
  - PREGNANCY [None]
